FAERS Safety Report 11274280 (Version 2)
Quarter: 2015Q3

REPORT INFORMATION
  Report Type: Spontaneous
  Country: TR (occurrence: TR)
  Receive Date: 20150715
  Receipt Date: 20150812
  Transmission Date: 20151125
  Serious: Yes (Other)
  Sender: FDA-Public Use
  Company Number: TR-ELI_LILLY_AND_COMPANY-TR201507003961

PATIENT
  Age: 50 Year
  Sex: Female

DRUGS (6)
  1. BENEDAY [Concomitant]
     Dosage: UNK, UNKNOWN
     Route: 065
  2. PROZAC [Suspect]
     Active Substance: FLUOXETINE HYDROCHLORIDE
     Indication: PRODUCT USED FOR UNKNOWN INDICATION
     Dosage: UNK, UNKNOWN
     Route: 065
     Dates: start: 201503
  3. LERCADIP                           /01366401/ [Concomitant]
     Active Substance: LERCANIDIPINE
     Indication: HYPERTENSION
     Dosage: 10 MG, UNKNOWN
     Route: 065
  4. DIDERAL [Concomitant]
     Indication: HYPERTENSION
     Dosage: 20 MG, QD
     Route: 065
  5. NOOTROPIL [Concomitant]
     Active Substance: PIRACETAM
     Dosage: UNK, UNKNOWN
     Route: 065
  6. NEURONTIN [Concomitant]
     Active Substance: GABAPENTIN
     Dosage: UNK, UNKNOWN
     Route: 065

REACTIONS (2)
  - Coma [Recovered/Resolved]
  - Hypoaesthesia [Recovered/Resolved]

NARRATIVE: CASE EVENT DATE: 20150709
